FAERS Safety Report 23139491 (Version 1)
Quarter: 2023Q4

REPORT INFORMATION
  Report Type: Spontaneous
  Country: NL (occurrence: None)
  Receive Date: 20231102
  Receipt Date: 20231102
  Transmission Date: 20240109
  Serious: Yes (Other)
  Sender: FDA-Public Use
  Company Number: None

PATIENT
  Age: 68 Year
  Sex: Male
  Weight: 110.5 kg

DRUGS (22)
  1. PIRFENIDONE [Suspect]
     Active Substance: PIRFENIDONE
     Indication: Organising pneumonia
     Dosage: 3X PER DAG
     Route: 065
     Dates: start: 20230811, end: 20230920
  2. PIRFENIDONE [Suspect]
     Active Substance: PIRFENIDONE
     Indication: Idiopathic interstitial pneumonia
  3. DESLORATADINE [Concomitant]
     Active Substance: DESLORATADINE
  4. NITROGLYCERIN [Concomitant]
     Active Substance: NITROGLYCERIN
     Dosage: SPRAY SUBLING. 0,4MG/DO / NITROLINGUAL OROMUCOSALE SPRAY 0,4MG/DO FLAC 250DO
  5. METFORMIN HYDROCHLORIDE [Concomitant]
     Active Substance: METFORMIN HYDROCHLORIDE
  6. LOPERAMIDE [Concomitant]
     Active Substance: LOPERAMIDE
  7. EZETIMIBE [Concomitant]
     Active Substance: EZETIMIBE
  8. TEMAZEPAM [Concomitant]
     Active Substance: TEMAZEPAM
  9. LIPITOR [Concomitant]
     Active Substance: ATORVASTATIN CALCIUM
     Dosage: ZIE BIJGEVOEGDE LIJST 10-10-2023 GEGEVENS, DOCTOREN EN MEDICIJNEN
  10. NITROFURANTOIN [Concomitant]
     Active Substance: NITROFURANTOIN
  11. FUROSEMIDE [Concomitant]
     Active Substance: FUROSEMIDE
  12. CELLCEPT [Concomitant]
     Active Substance: MYCOPHENOLATE MOFETIL
     Route: 048
  13. OXAZEPAM [Concomitant]
     Active Substance: OXAZEPAM
  14. SOTALOL [Concomitant]
     Active Substance: SOTALOL
  15. OXYCODONE [Concomitant]
     Active Substance: OXYCODONE
  16. FENTANYL [Concomitant]
     Active Substance: FENTANYL\FENTANYL CITRATE
     Dosage: 75UG/UUR
  17. BUDESONIDE [Concomitant]
     Active Substance: BUDESONIDE
     Dosage: 0,125MG/ML AMP 2ML
  18. PHYTONADIONE [Concomitant]
     Active Substance: PHYTONADIONE
  19. TAMSULOSIN HYDROCHLORIDE [Concomitant]
     Active Substance: TAMSULOSIN HYDROCHLORIDE
  20. PREDNISOLONE [Concomitant]
     Active Substance: PREDNISOLONE
  21. ACENOCOUMAROL [Concomitant]
     Active Substance: ACENOCOUMAROL
  22. TACAL D3 [Concomitant]
     Dosage: 500MG/400IE

REACTIONS (3)
  - Nephrolithiasis [Recovering/Resolving]
  - Cystitis noninfective [Recovering/Resolving]
  - Blood glucose increased [Not Recovered/Not Resolved]
